FAERS Safety Report 6425458-8 (Version None)
Quarter: 2009Q4

REPORT INFORMATION
  Report Type: 
  Country: None (occurrence: None)
  Receive Date: 20091029
  Receipt Date: 20091015
  Transmission Date: 20100525
  Serious: Yes (Hospitalization)
  Sender: FDA-Public Use
  Company Number: CERZ-1000832

PATIENT
  Age: 35 Year
  Sex: Male
  Weight: 73.5 kg

DRUGS (2)
  1. CEREZYME [Suspect]
     Indication: GAUCHER'S DISEASE
     Dosage: 3200 U, Q2W, INTRAVENOUS
     Route: 042
     Dates: start: 20010115
  2. CEREZYME [Suspect]
     Dosage: 800 U, Q4W. INTRAVENOUS
     Route: 042

REACTIONS (1)
  - ATRIAL FIBRILLATION [None]
